FAERS Safety Report 9430551 (Version 1)
Quarter: 2013Q3

REPORT INFORMATION
  Report Type: Spontaneous
  Country: BR (occurrence: None)
  Receive Date: 20130726
  Receipt Date: 20130726
  Transmission Date: 20140515
  Serious: Yes (Other)
  Sender: FDA-Public Use
  Company Number: 7225301

PATIENT
  Age: 82 Year
  Sex: Female

DRUGS (4)
  1. EUTHYROX [Suspect]
     Indication: PRODUCT USED FOR UNKNOWN INDICATION
     Dosage: HALF OF TAB PER DAY
  2. PROPAFENONE HYDROCHLORIDE (PROPAFENONE HYDROCHLORIDE) (PROPAFENONE HYDROCHLORIDE) [Concomitant]
  3. ATORVASTATIN CALCIUM(ATORVASTATIN CALCIUM)(ATORVASTATIN CALCIUM) [Concomitant]
  4. VENALOT?/00021901/(ESBERIVEN /00021901/)(RUTOSIDE, MELILOTUS OFFICINALIS) [Concomitant]

REACTIONS (1)
  - Anuria [None]
